FAERS Safety Report 7564197-7 (Version None)
Quarter: 2011Q2

REPORT INFORMATION
  Report Type: 
  Country: None (occurrence: None)
  Receive Date: 20110622
  Receipt Date: 20110608
  Transmission Date: 20111010
  Serious: Yes (Other)
  Sender: FDA-Public Use
  Company Number: PHHY2011BR23313

PATIENT
  Age: 52 Year
  Sex: Female
  Weight: 84 kg

DRUGS (2)
  1. FEMARA [Suspect]
     Indication: BREAST CANCER
     Dosage: 2.5 MG, UNK
     Dates: start: 20110201
  2. FEMARA [Suspect]
     Dosage: 1 DF, DAILY
     Route: 048

REACTIONS (8)
  - ARTHRALGIA [None]
  - WEIGHT INCREASED [None]
  - BODY TEMPERATURE INCREASED [None]
  - OEDEMA PERIPHERAL [None]
  - DRY MOUTH [None]
  - HEADACHE [None]
  - EMOTIONAL DISTRESS [None]
  - ANAEMIA [None]
